FAERS Safety Report 5717908-7 (Version None)
Quarter: 2008Q2

REPORT INFORMATION
  Report Type: 
  Country: None (occurrence: None)
  Receive Date: 20080425
  Receipt Date: 20080414
  Transmission Date: 20081010
  Serious: Yes (Other)
  Sender: FDA-Public Use
  Company Number: LB-GENENTECH-259697

PATIENT
  Age: 20 Year
  Sex: Female

DRUGS (4)
  1. MABTHERA [Suspect]
     Indication: POLYMYOSITIS
     Dosage: 1 G, UNK
     Route: 042
     Dates: start: 20080328, end: 20080411
  2. METHOTREXATE [Concomitant]
     Indication: DRUG USE FOR UNKNOWN INDICATION
  3. ZOLEDRONIC ACID [Concomitant]
     Indication: DRUG USE FOR UNKNOWN INDICATION
  4. LEXOTANIL [Concomitant]
     Indication: DRUG USE FOR UNKNOWN INDICATION

REACTIONS (1)
  - TREMOR [None]
